FAERS Safety Report 7764581-2 (Version None)
Quarter: 2011Q3

REPORT INFORMATION
  Report Type: 
  Country: None (occurrence: None)
  Receive Date: 20110921
  Receipt Date: 20110915
  Transmission Date: 20111222
  Serious: Yes (Other)
  Sender: FDA-Public Use
  Company Number: PT-PFIZER INC-2011157889

PATIENT
  Age: 70 Year
  Sex: Female

DRUGS (7)
  1. DIAZEPAM [Concomitant]
     Dosage: UNK
  2. AIRTAL [Concomitant]
     Indication: ARTHRITIS
     Dosage: 100 MG, 1X/DAY
  3. PICALM [Concomitant]
     Indication: ARTHRALGIA
     Dosage: UNK
     Route: 061
  4. LYRICA [Suspect]
     Indication: OSTEOARTHRITIS
     Dosage: 25 MG, 1X/DAY
     Route: 048
     Dates: start: 20110711, end: 20110801
  5. DIOVAN HCT [Concomitant]
     Dosage: 12.5MG + 160MG, 1X/DAY
  6. DILTIAZEM HCL [Concomitant]
     Dosage: 1 DF, 1X/DAY
  7. MAGNESIUM CHLORIDE ANHYDROUS [Concomitant]
     Dosage: UNK

REACTIONS (5)
  - HYPERSOMNIA [None]
  - VISUAL ACUITY REDUCED [None]
  - GASTRIC DILATATION [None]
  - HEPATOMEGALY [None]
  - SOMNOLENCE [None]
